FAERS Safety Report 10507269 (Version 3)
Quarter: 2015Q3

REPORT INFORMATION
  Report Type: Report from Study
  Country: US (occurrence: US)
  Receive Date: 20141009
  Receipt Date: 20150722
  Transmission Date: 20151125
  Serious: Yes (Other)
  Sender: FDA-Public Use
  Company Number: US-SA-2014SA137436

PATIENT
  Age: 58 Year
  Sex: Male

DRUGS (1)
  1. APIDRA [Suspect]
     Active Substance: INSULIN GLULISINE
     Indication: DIABETES MELLITUS
     Dosage: DOSE:180 UNIT(S)
     Route: 058
     Dates: start: 19940713

REACTIONS (2)
  - Cataract operation [Unknown]
  - Renal failure [Unknown]

NARRATIVE: CASE EVENT DATE: 20110104
